FAERS Safety Report 11785554 (Version 2)
Quarter: 2015Q4

REPORT INFORMATION
  Report Type: Spontaneous
  Country: DK (occurrence: DK)
  Receive Date: 20151130
  Receipt Date: 20151204
  Transmission Date: 20160305
  Serious: Yes (Other)
  Sender: FDA-Public Use
  Company Number: DK-ASTELLAS-2015US040486

PATIENT
  Age: 73 Year
  Sex: Male

DRUGS (6)
  1. ZOLADEX [Concomitant]
     Active Substance: GOSERELIN ACETATE
     Indication: PROSTATE CANCER
     Dosage: 1 IMPLANT EVERY 12 WEEK
     Route: 065
     Dates: start: 20150824
  2. UNIKALK BASIC [Concomitant]
     Indication: VITAMIN D
     Dates: start: 20150504
  3. XTANDI [Suspect]
     Active Substance: ENZALUTAMIDE
     Indication: BONE CANCER METASTATIC
  4. XTANDI [Suspect]
     Active Substance: ENZALUTAMIDE
     Indication: HORMONE-REFRACTORY PROSTATE CANCER
     Dosage: UNK, UNKNOWN FREQ.
     Route: 065
     Dates: start: 20150911, end: 20150930
  5. LAXOBERAL [Concomitant]
     Active Substance: SODIUM PICOSULFATE
     Indication: CONSTIPATION
     Dosage: 5 DROPS WHEN NEEDED. MAX 30 DROPS
     Route: 065
     Dates: start: 20150825
  6. LANZOPRAZOL [Concomitant]
     Active Substance: LANSOPRAZOLE
     Indication: PROPHYLAXIS AGAINST GASTROINTESTINAL ULCER
     Dosage: 1 DF,DAILY
     Route: 065
     Dates: start: 20150504

REACTIONS (2)
  - Fatigue [Unknown]
  - Tongue oedema [Recovered/Resolved]

NARRATIVE: CASE EVENT DATE: 201509
